FAERS Safety Report 8204743-3 (Version None)
Quarter: 2012Q1

REPORT INFORMATION
  Report Type: 
  Country: None (occurrence: None)
  Receive Date: 20120313
  Receipt Date: 20111117
  Transmission Date: 20120608
  Serious: Yes (Hospitalization)
  Sender: FDA-Public Use
  Company Number: US-ELI_LILLY_AND_COMPANY-US200709003015

PATIENT
  Age: 54 Year
  Sex: Female

DRUGS (11)
  1. ZYPREXA ZYDIS [Suspect]
     Dosage: 5 MG, UNK
  2. ZYPREXA ZYDIS [Suspect]
     Indication: SCHIZOPHRENIA
     Dosage: 10 MG, QD
     Dates: start: 19960101
  3. ZYPREXA [Suspect]
     Dosage: 10 MG, UNK
     Route: 065
  4. ZYPREXA ZYDIS [Suspect]
     Dosage: 10 MG, UNK
  5. LITHIUM CARBONATE [Concomitant]
  6. CLONAZEPAM [Concomitant]
  7. LEVOTHYROXINE SODIUM [Concomitant]
  8. ZYPREXA ZYDIS [Suspect]
     Dosage: 30 MG, UNK
     Route: 048
  9. ZYPREXA [Suspect]
     Dosage: 25 MG, UNK
     Route: 065
     Dates: start: 20111101
  10. ZYPREXA [Suspect]
     Dosage: 15 MG, UNK
     Route: 065
  11. ZYPREXA [Suspect]
     Indication: SCHIZOAFFECTIVE DISORDER
     Dosage: 5 MG, UNK
     Route: 065

REACTIONS (9)
  - WEIGHT INCREASED [None]
  - PSYCHOTIC DISORDER [None]
  - THYROID DISORDER [None]
  - DRUG INEFFECTIVE [None]
  - INTENTIONAL DRUG MISUSE [None]
  - OVERDOSE [None]
  - DELUSION [None]
  - EUPHORIC MOOD [None]
  - PARANOIA [None]
